FAERS Safety Report 24456948 (Version 1)
Quarter: 2024Q4

REPORT INFORMATION
  Report Type: Spontaneous
  Country: US (occurrence: US)
  Receive Date: 20241018
  Receipt Date: 20241018
  Transmission Date: 20250115
  Serious: No
  Sender: Day One Biopharmaceuticals
  Company Number: US-DAY ONE BIOPHARMACEUTICALS, INC.-2024US000573

PATIENT
  Age: 11 Year
  Sex: Female

DRUGS (1)
  1. OJEMDA [Suspect]
     Active Substance: TOVORAFENIB
     Indication: Glioma
     Dosage: UNK
     Route: 065
     Dates: start: 2024

REACTIONS (1)
  - Haemorrhagic cyst [Not Recovered/Not Resolved]
